FAERS Safety Report 4944614-9 (Version None)
Quarter: 2006Q1

REPORT INFORMATION
  Report Type: 
  Country: None (occurrence: None)
  Receive Date: 20060315
  Receipt Date: 20041115
  Transmission Date: 20060701
  Serious: Yes (Disabling)
  Sender: FDA-Public Use
  Company Number: US-ROCHE-386394

PATIENT
  Age: 20 Year
  Sex: Male
  Weight: 88.5 kg

DRUGS (2)
  1. ACCUTANE [Suspect]
     Indication: ACNE
     Route: 048
     Dates: start: 20030215, end: 20030615
  2. ANTIBIOTIC [Concomitant]
     Indication: DRUG USE FOR UNKNOWN INDICATION

REACTIONS (14)
  - BACK PAIN [None]
  - BLINDNESS [None]
  - DEPRESSION [None]
  - DIVERTICULITIS [None]
  - GASTROINTESTINAL DISORDER [None]
  - HAEMORRHAGE [None]
  - INFLAMMATORY BOWEL DISEASE [None]
  - INTESTINAL HAEMORRHAGE [None]
  - JOINT SPRAIN [None]
  - NERVE COMPRESSION [None]
  - NIGHT BLINDNESS [None]
  - RECTAL HAEMORRHAGE [None]
  - VISION BLURRED [None]
  - VISUAL DISTURBANCE [None]
